FAERS Safety Report 5260764-4 (Version None)
Quarter: 2007Q1

REPORT INFORMATION
  Report Type: 
  Country: None (occurrence: None)
  Receive Date: 20070309
  Receipt Date: 20070226
  Transmission Date: 20070707
  Serious: Yes (Other)
  Sender: FDA-Public Use
  Company Number: US-MERCK-0702USA04413

PATIENT
  Age: 68 Year
  Sex: Female

DRUGS (4)
  1. SINGULAIR [Suspect]
     Indication: BRONCHITIS CHRONIC
     Route: 048
     Dates: start: 20060201, end: 20061015
  2. PULMICORT [Concomitant]
     Route: 065
  3. ASTELIN [Concomitant]
     Route: 065
  4. NASONEX [Concomitant]
     Route: 065

REACTIONS (3)
  - BRAIN CONTUSION [None]
  - CEREBRAL HAEMORRHAGE [None]
  - HALLUCINATION [None]
